FAERS Safety Report 11037583 (Version 3)
Quarter: 2015Q3

REPORT INFORMATION
  Report Type: Spontaneous
  Country: DE (occurrence: None)
  Receive Date: 20150414
  Receipt Date: 20150728
  Transmission Date: 20151125
  Serious: Yes (Other)
  Sender: FDA-Public Use
  Company Number: DEP_02641_2015

PATIENT
  Age: 68 Year
  Sex: Male
  Weight: 88 kg

DRUGS (9)
  1. FOLSAN [Concomitant]
     Active Substance: FOLIC ACID
  2. TAMSULOSIN [Concomitant]
     Active Substance: TAMSULOSIN
  3. PLAVIX [Concomitant]
     Active Substance: CLOPIDOGREL BISULFATE
  4. GABAPENTIN. [Concomitant]
     Active Substance: GABAPENTIN
  5. PALEXIA [Concomitant]
     Active Substance: TAPENTADOL HYDROCHLORIDE
  6. LOSARTAN. [Concomitant]
     Active Substance: LOSARTAN
  7. PALEXIA [Suspect]
     Active Substance: TAPENTADOL HYDROCHLORIDE
     Indication: NEURALGIA
     Route: 048
     Dates: start: 201502, end: 20150220
  8. BACLOFEN. [Concomitant]
     Active Substance: BACLOFEN
  9. PALEXIA [Suspect]
     Active Substance: TAPENTADOL HYDROCHLORIDE
     Indication: OSTEOARTHRITIS
     Route: 048
     Dates: start: 201502, end: 20150220

REACTIONS (5)
  - Withdrawal syndrome [None]
  - Fall [None]
  - Feeling abnormal [None]
  - Blood glucose increased [None]
  - Dizziness [None]

NARRATIVE: CASE EVENT DATE: 201502
